FAERS Safety Report 8623839 (Version 2)
Quarter: 2013Q1

REPORT INFORMATION
  Report Type: Spontaneous
  Country: US (occurrence: US)
  Receive Date: 20120620
  Receipt Date: 20130111
  Transmission Date: 20140127
  Serious: Yes (Congenital Anomaly, Other)
  Sender: FDA-Public Use
  Company Number: US-PFIZER INC-2012146313

PATIENT
  Sex: Female

DRUGS (4)
  1. ZOLOFT [Suspect]
     Dosage: UNK
     Route: 064
     Dates: start: 2008
  2. ZOLOFT [Suspect]
     Dosage: UNK
     Route: 064
     Dates: start: 2009
  3. SERTRALINE HCL [Suspect]
     Dosage: 50 MG
     Route: 064
     Dates: start: 20080330, end: 20090219
  4. SERTRALINE HCL [Suspect]
     Dosage: 100 MG
     Route: 064
     Dates: start: 20090403, end: 20090614

REACTIONS (6)
  - Maternal exposure timing unspecified [Unknown]
  - Hypoplastic right heart syndrome [Unknown]
  - Pulmonary artery atresia [Unknown]
  - Patent ductus arteriosus [Unknown]
  - Congenital coronary artery malformation [Unknown]
  - Congenital coronary artery malformation [Unknown]
